FAERS Safety Report 7491829-4 (Version None)
Quarter: 2011Q2

REPORT INFORMATION
  Report Type: 
  Country: None (occurrence: None)
  Receive Date: 20110519
  Receipt Date: 20110510
  Transmission Date: 20111010
  Serious: Yes (Hospitalization, Other)
  Sender: FDA-Public Use
  Company Number: US-AMGEN-USASP2011024214

PATIENT
  Age: 59 Year
  Sex: Female

DRUGS (2)
  1. ENBREL [Suspect]
     Indication: RHEUMATOID ARTHRITIS
     Dosage: 50 MG, QWK
     Dates: start: 19990601
  2. ENBREL [Suspect]
     Indication: OSTEOPOROSIS

REACTIONS (5)
  - SPINAL FUSION SURGERY [None]
  - SPINAL LAMINECTOMY [None]
  - PAIN [None]
  - RHEUMATOID ARTHRITIS [None]
  - INGUINAL HERNIA [None]
